FAERS Safety Report 23558776 (Version 1)
Quarter: 2024Q1

REPORT INFORMATION
  Report Type: Report from Study
  Country: CO (occurrence: CO)
  Receive Date: 20240223
  Receipt Date: 20240223
  Transmission Date: 20240410
  Serious: Yes (Other)
  Sender: FDA-Public Use
  Company Number: CO-BAYER-2024A003540

PATIENT
  Sex: Female

DRUGS (2)
  1. EYLEA [Suspect]
     Active Substance: AFLIBERCEPT
     Indication: Age-related macular degeneration
     Dosage: 2MG INTRAVITREALLY MONTHLY FOR 3 MONTHS, AND THEN EVERY 2 MONTHS, SOLUTION FOR INJECTION, 40 MG/ML
     Route: 031
     Dates: start: 20190829, end: 20190829
  2. EYLEA [Suspect]
     Active Substance: AFLIBERCEPT
     Dosage: 2MG INTRAVITREALLY MONTHLY FOR 3 MONTHS, AND THEN EVERY 2 MONTHS, SOLUTION FOR INJECTION, 40 MG/ML
     Route: 031

REACTIONS (2)
  - Blindness unilateral [Unknown]
  - Vision blurred [Unknown]
